FAERS Safety Report 20739076 (Version 6)
Quarter: 2024Q4

REPORT INFORMATION
  Report Type: Report from Study
  Country: US (occurrence: US)
  Receive Date: 20220422
  Receipt Date: 20241001
  Transmission Date: 20250114
  Serious: Yes (Other)
  Sender: NOVARTIS
  Company Number: US-NOVARTISTESTPH-NVSC2022US093078

PATIENT
  Sex: Male

DRUGS (1)
  1. PROMACTA [Suspect]
     Active Substance: ELTROMBOPAG OLAMINE
     Indication: Product used for unknown indication
     Dosage: 25 MG, QD
     Route: 048

REACTIONS (10)
  - Head injury [Unknown]
  - Haemorrhage [Unknown]
  - Paralysis [Unknown]
  - Coma [Unknown]
  - Guillain-Barre syndrome [Unknown]
  - Platelet count decreased [Unknown]
  - Limb discomfort [Unknown]
  - COVID-19 [Unknown]
  - Animal bite [Unknown]
  - Intentional product use issue [Unknown]
